FAERS Safety Report 23202134 (Version 1)
Quarter: 2023Q4

REPORT INFORMATION
  Report Type: Report from Study
  Country: US (occurrence: US)
  Receive Date: 20231120
  Receipt Date: 20231120
  Transmission Date: 20240109
  Serious: Yes (Hospitalization, Other)
  Sender: FDA-Public Use
  Company Number: US-ABBVIE-5498205

PATIENT
  Sex: Female

DRUGS (2)
  1. HUMIRA [Suspect]
     Active Substance: ADALIMUMAB
     Indication: Hidradenitis
     Dosage: FORM STRENGTH: 40 MILLIGRAM ?CITRATE FREE?LAST ADMIN DATE IN 2023
     Route: 058
     Dates: start: 20230328
  2. HUMIRA [Suspect]
     Active Substance: ADALIMUMAB
     Dosage: FIRST ADMIN DATE IN 2023
     Route: 058
     Dates: start: 2023

REACTIONS (4)
  - Hidradenitis [Unknown]
  - Skin mass [Unknown]
  - Inflammation [Unknown]
  - Abscess [Unknown]

NARRATIVE: CASE EVENT DATE: 20230101
